FAERS Safety Report 17988073 (Version 1)
Quarter: 2020Q3

REPORT INFORMATION
  Report Type: Spontaneous
  Country: US (occurrence: US)
  Receive Date: 20200706
  Receipt Date: 20200706
  Transmission Date: 20201103
  Serious: Yes (Other)
  Sender: FDA-Public Use
  Company Number: None

PATIENT
  Age: 63 Year
  Sex: Female

DRUGS (1)
  1. FULPHILA [Suspect]
     Active Substance: PEGFILGRASTIM-JMDB
     Dates: start: 20200417, end: 20200417

REACTIONS (3)
  - Pyrexia [None]
  - Back pain [None]
  - Pleural effusion [None]

NARRATIVE: CASE EVENT DATE: 20200424
